FAERS Safety Report 9742125 (Version 2)
Quarter: 2013Q4

REPORT INFORMATION
  Report Type: Spontaneous
  Country: US (occurrence: US)
  Receive Date: 20131210
  Receipt Date: 20131210
  Transmission Date: 20140711
  Serious: Yes (Other)
  Sender: FDA-Public Use
  Company Number: US-SANOFI-AVENTIS-2012SA052253

PATIENT
  Age: 80 Year
  Sex: Male

DRUGS (6)
  1. LANTUS SOLOSTAR [Suspect]
     Indication: TYPE 2 DIABETES MELLITUS
     Dosage: DOSE:15 UNIT(S)
     Route: 058
     Dates: start: 20120719
  2. LANTUS SOLOSTAR [Suspect]
     Indication: TYPE 2 DIABETES MELLITUS
     Dosage: LANTUS SOLOSTAR TO 20 UNIT IN THE AM AND 12 UNITS IN THE PM.
     Route: 058
  3. GLIPIZIDE [Suspect]
     Route: 065
  4. SOLOSTAR [Concomitant]
     Dates: start: 20120719
  5. SOLOSTAR [Concomitant]
  6. BYETTA [Concomitant]
     Indication: TYPE 2 DIABETES MELLITUS
     Route: 065
     Dates: end: 20120719

REACTIONS (7)
  - Visual impairment [Unknown]
  - Disease progression [Unknown]
  - Cardiac disorder [Unknown]
  - Arthritis [Unknown]
  - Weight increased [Unknown]
  - Blood glucose increased [Not Recovered/Not Resolved]
  - Feeling abnormal [Unknown]
